FAERS Safety Report 7248449-6 (Version None)
Quarter: 2011Q1

REPORT INFORMATION
  Report Type: 
  Country: None (occurrence: None)
  Receive Date: 20110127
  Receipt Date: 20110120
  Transmission Date: 20110831
  Serious: Yes (Hospitalization, Other)
  Sender: FDA-Public Use
  Company Number: US-ELI_LILLY_AND_COMPANY-US201101001698

PATIENT
  Sex: Male

DRUGS (2)
  1. HUMULIN 70/30 [Suspect]
     Indication: TYPE 2 DIABETES MELLITUS
     Dosage: 40 U, EACH MORNING
     Dates: start: 20000101
  2. HUMULIN 70/30 [Suspect]
     Dosage: 20 U, OTHER
     Dates: start: 20000101

REACTIONS (7)
  - BLOOD GLUCOSE INCREASED [None]
  - RENAL FAILURE [None]
  - POLYDIPSIA [None]
  - VOMITING [None]
  - KETOACIDOSIS [None]
  - CARDIAC DISORDER [None]
  - COMA [None]
